FAERS Safety Report 4807075-6 (Version None)
Quarter: 2005Q4

REPORT INFORMATION
  Report Type: 
  Country: None (occurrence: None)
  Receive Date: 20051019
  Receipt Date: 20050930
  Transmission Date: 20060501
  Serious: Yes (Other)
  Sender: FDA-Public Use
  Company Number: GBS051018613

PATIENT
  Age: 12 Year

DRUGS (1)
  1. STRATTERA [Suspect]

REACTIONS (1)
  - SUICIDAL IDEATION [None]
